FAERS Safety Report 15061913 (Version 1)
Quarter: 2018Q2

REPORT INFORMATION
  Report Type: Spontaneous
  Country: DE (occurrence: DE)
  Receive Date: 20180625
  Receipt Date: 20180625
  Transmission Date: 20180711
  Serious: Yes (Hospitalization)
  Sender: FDA-Public Use
  Company Number: DE-PFIZER INC-2018252462

PATIENT
  Age: 60 Year
  Sex: Female

DRUGS (1)
  1. LYRICA [Suspect]
     Active Substance: PREGABALIN
     Dosage: 75 MG X 5 UNITS

REACTIONS (3)
  - Tremor [Unknown]
  - Toxicity to various agents [Unknown]
  - Nervousness [Unknown]

NARRATIVE: CASE EVENT DATE: 2016
